FAERS Safety Report 8806411 (Version 2)
Quarter: 2012Q4

REPORT INFORMATION
  Report Type: Report from Study
  Country: US (occurrence: US)
  Receive Date: 20120925
  Receipt Date: 20121025
  Transmission Date: 20130627
  Serious: Yes (Hospitalization)
  Sender: FDA-Public Use
  Company Number: US-AMGEN-USANI2012059739

PATIENT
  Age: 70 Year
  Sex: Female

DRUGS (16)
  1. DENOSUMAB [Suspect]
     Indication: OSTEOPOROSIS POSTMENOPAUSAL
     Dosage: 60 mg, q6mo
     Route: 058
     Dates: start: 20110817
  2. MULTIVITAMIN [Concomitant]
  3. ADVAIR [Concomitant]
     Dosage: UNK UNK, bid
  4. HYDROCHLOROTHIAZIDE [Concomitant]
  5. OLMESARTAN [Concomitant]
  6. VITAMIN C [Concomitant]
  7. LORATADINE [Concomitant]
  8. TOPROL [Concomitant]
     Dosage: 100 mg, UNK
     Route: 048
  9. FERROUS SULFATE [Concomitant]
     Dosage: UNK
     Route: 048
  10. PROTONIX [Concomitant]
  11. GUAIFENESIN [Concomitant]
  12. SPIRIVA [Concomitant]
     Route: 055
  13. ALBUTEROL [Concomitant]
     Indication: WHEEZING
     Route: 055
  14. VITAMIN E [Concomitant]
  15. CHOLECALCIFEROL [Concomitant]
  16. VITAMIN D3 [Concomitant]

REACTIONS (1)
  - Vulval cellulitis [Recovered/Resolved]
